FAERS Safety Report 6976340-9 (Version None)
Quarter: 2010Q3

REPORT INFORMATION
  Report Type: 
  Country: None (occurrence: None)
  Receive Date: 20100910
  Receipt Date: 20090422
  Transmission Date: 20110219
  Serious: No
  Sender: FDA-Public Use
  Company Number: US-WYE-H09057009

PATIENT
  Sex: Male

DRUGS (2)
  1. PRISTIQ [Suspect]
     Indication: DEPRESSION
     Route: 048
     Dates: start: 20090422
  2. PRISTIQ [Suspect]
     Indication: ANXIETY

REACTIONS (3)
  - FATIGUE [None]
  - FEELING ABNORMAL [None]
  - FLUSHING [None]
